FAERS Safety Report 8773545 (Version 1)
Quarter: 2012Q4

REPORT INFORMATION
  Report Type: Report from Study
  Country: JP (occurrence: JP)
  Receive Date: 20120907
  Receipt Date: 20120907
  Transmission Date: 20130627
  Serious: Yes (Life-Threatening)
  Sender: FDA-Public Use
  Company Number: JP-GLAXOSMITHKLINE-B0827746A

PATIENT
  Age: 51 Year
  Sex: Female
  Weight: 48 kg

DRUGS (21)
  1. REVOLADE [Suspect]
     Indication: IDIOPATHIC THROMBOCYTOPENIC PURPURA
     Dosage: 12.5MG Per day
     Route: 048
     Dates: start: 20110419, end: 20110424
  2. REVOLADE [Suspect]
     Indication: IDIOPATHIC THROMBOCYTOPENIC PURPURA
     Dosage: 12.5MG Per day
     Route: 048
     Dates: start: 20110512, end: 20110518
  3. REVOLADE [Suspect]
     Indication: IDIOPATHIC THROMBOCYTOPENIC PURPURA
     Dosage: 25MG Per day
     Route: 048
     Dates: start: 20110519, end: 20110525
  4. REVOLADE [Suspect]
     Indication: IDIOPATHIC THROMBOCYTOPENIC PURPURA
     Dosage: 37.5MG Per day
     Route: 048
     Dates: start: 20110526, end: 20111115
  5. REVOLADE [Suspect]
     Indication: IDIOPATHIC THROMBOCYTOPENIC PURPURA
     Dosage: 25MG Per day
     Route: 048
     Dates: start: 20111116, end: 20111220
  6. REVOLADE [Suspect]
     Indication: IDIOPATHIC THROMBOCYTOPENIC PURPURA
     Dosage: 12.5MG Per day
     Route: 048
     Dates: start: 20111221, end: 20120117
  7. REVOLADE [Suspect]
     Indication: IDIOPATHIC THROMBOCYTOPENIC PURPURA
     Dosage: 12.5MG Twice per day
     Route: 048
     Dates: start: 20120118
  8. IMURAN [Suspect]
     Route: 048
  9. MAGMITT [Concomitant]
     Indication: CONSTIPATION
     Dosage: 990MG Per day
     Route: 048
     Dates: end: 20120214
  10. METHYCOBAL [Concomitant]
     Indication: VITAMIN B12 DEFICIENCY
     Dosage: 1000MCG Per day
     Route: 048
  11. MEDROL [Concomitant]
     Indication: VASCULITIS
     Dosage: 3IUAX Per day
     Route: 048
     Dates: end: 20111125
  12. MEDROL [Concomitant]
     Indication: VASCULITIS
     Dosage: 2.5IUAX Per day
     Route: 048
     Dates: start: 20111126, end: 20111220
  13. MEDROL [Concomitant]
     Indication: VASCULITIS
     Dosage: 2IUAX Per day
     Route: 048
     Dates: start: 20111221, end: 20120117
  14. MEDROL [Concomitant]
     Indication: VASCULITIS
     Dosage: 1.5IUAX Per day
     Route: 048
     Dates: start: 20120118
  15. BAKTAR [Concomitant]
     Indication: ANTIFUNGAL PROPHYLAXIS
     Route: 048
  16. GASTER [Concomitant]
     Indication: GASTRITIS
     Dosage: 20MG Per day
     Route: 048
  17. MYSLEE [Concomitant]
     Dosage: 10MG Per day
     Route: 048
  18. FLUCONAZOLE [Concomitant]
     Indication: GASTROINTESTINAL CANDIDIASIS
     Dosage: 100MG Per day
     Route: 048
  19. KEPPRA [Concomitant]
     Indication: CONVULSION
     Dosage: 1000MG Per day
     Route: 048
     Dates: start: 20110711
  20. ALFAROL [Concomitant]
     Indication: OSTEOPOROSIS
     Dosage: .25MCG Per day
     Route: 048
  21. WARFARIN [Concomitant]
     Indication: CEREBRAL INFARCTION
     Dosage: 1MG Per day
     Route: 048
     Dates: start: 20120314

REACTIONS (1)
  - Agranulocytosis [Recovered/Resolved]
